FAERS Safety Report 5133900-8 (Version None)
Quarter: 2006Q4

REPORT INFORMATION
  Report Type: 
  Country: None (occurrence: None)
  Receive Date: 20061018
  Receipt Date: 20061003
  Transmission Date: 20070319
  Serious: Yes (Other)
  Sender: FDA-Public Use
  Company Number: PAR_0850_2006

PATIENT
  Age: 82 Year
  Sex: Female

DRUGS (2)
  1. VERAPAMIL HYDROCHLORIDE [Suspect]
     Indication: EXTRASYSTOLES
     Dosage: DF, QD; PO
     Route: 048
     Dates: start: 20060101, end: 20060501
  2. STARLIX [Suspect]
     Indication: BLOOD GLUCOSE INCREASED
     Dosage: 1.5 DF ONCE; PO
     Route: 048
     Dates: start: 20060501, end: 20060501

REACTIONS (5)
  - ABNORMAL SENSATION IN EYE [None]
  - BALANCE DISORDER [None]
  - BLOOD GLUCOSE INCREASED [None]
  - DIZZINESS [None]
  - VISION BLURRED [None]
